FAERS Safety Report 21776702 (Version 1)
Quarter: 2022Q4

REPORT INFORMATION
  Report Type: Spontaneous
  Country: US (occurrence: US)
  Receive Date: 20221226
  Receipt Date: 20221226
  Transmission Date: 20230113
  Serious: Yes (Hospitalization)
  Sender: FDA-Public Use
  Company Number: US-STRIDES ARCOLAB LIMITED-2022SP017279

PATIENT
  Sex: Female
  Weight: 108.84 kg

DRUGS (3)
  1. LOSARTAN [Suspect]
     Active Substance: LOSARTAN
     Indication: Blood pressure measurement
     Dosage: UNK, (OTHER BRAND)
     Route: 065
  2. LOSARTAN [Suspect]
     Active Substance: LOSARTAN
     Dosage: 25 MILLIGRAM, BID, 25MG TABLETS TWICE A DAY (STRIDES BRAND)
     Route: 048
     Dates: start: 202211, end: 20231203
  3. SYNTHROID [Concomitant]
     Active Substance: LEVOTHYROXINE SODIUM
     Indication: Hypothyroidism
     Dosage: UNK, EVERY MORNING, ONCE A DAY FOR PAST 15 TO 20 YEARS
     Route: 065

REACTIONS (4)
  - Adverse drug reaction [Unknown]
  - Illness [Unknown]
  - Nausea [Unknown]
  - Drug ineffective [Unknown]

NARRATIVE: CASE EVENT DATE: 20220101
